FAERS Safety Report 8354119-3 (Version None)
Quarter: 2012Q2

REPORT INFORMATION
  Report Type: 
  Country: None (occurrence: None)
  Receive Date: 20120511
  Receipt Date: 20120509
  Transmission Date: 20120825
  Serious: Yes (Other)
  Sender: FDA-Public Use
  Company Number: AU-ROCHE-1067412

PATIENT
  Sex: Male

DRUGS (9)
  1. ACTEMRA [Suspect]
     Indication: RHEUMATOID ARTHRITIS
     Dates: start: 20111101
  2. NEXIUM [Concomitant]
  3. NORVASC [Concomitant]
  4. PREDNISOLONE [Concomitant]
  5. WARFARIN SODIUM [Concomitant]
  6. CALCIUM [Concomitant]
  7. PREDNISOLONE [Concomitant]
  8. PREDNISOLONE [Concomitant]
  9. PREDNISOLONE [Concomitant]

REACTIONS (1)
  - ARTHRALGIA [None]
